FAERS Safety Report 12215775 (Version 2)
Quarter: 2016Q2

REPORT INFORMATION
  Report Type: Spontaneous
  Country: US (occurrence: US)
  Receive Date: 20160328
  Receipt Date: 20160405
  Transmission Date: 20160815
  Serious: No
  Sender: FDA-Public Use
  Company Number: US-BAYER-2016-057721

PATIENT
  Age: 32 Year
  Sex: Female

DRUGS (1)
  1. BETASERON [Suspect]
     Active Substance: INTERFERON BETA-1B
     Indication: MULTIPLE SCLEROSIS
     Dosage: 3 MG, QOD
     Route: 058
     Dates: start: 201601, end: 201602

REACTIONS (4)
  - Arthralgia [None]
  - Product use issue [None]
  - Headache [None]
  - Myalgia [None]

NARRATIVE: CASE EVENT DATE: 2016
